FAERS Safety Report 22762692 (Version 4)
Quarter: 2024Q2

REPORT INFORMATION
  Report Type: Report from Study
  Country: DE (occurrence: DE)
  Receive Date: 20230728
  Receipt Date: 20240410
  Transmission Date: 20240716
  Serious: Yes (Hospitalization, Other)
  Sender: FDA-Public Use
  Company Number: DE-ROCHE-2811899

PATIENT
  Age: 60 Year
  Sex: Female

DRUGS (3)
  1. BOTOX [Suspect]
     Active Substance: ONABOTULINUMTOXINA
     Indication: Stress urinary incontinence
     Dosage: TIME INTERVAL: AS NECESSARY
     Route: 065
     Dates: start: 20230508, end: 20230508
  2. OCREVUS [Suspect]
     Active Substance: OCRELIZUMAB
     Indication: Primary progressive multiple sclerosis
     Dosage: SUBSEQUENT DOSE 600 MG FOR 190 DAYS
     Route: 042
     Dates: start: 20200220
  3. PROPIONIC ACID [Concomitant]
     Active Substance: PROPIONIC ACID
     Indication: Product used for unknown indication

REACTIONS (7)
  - Gait inability [Recovered/Resolved]
  - Nerve compression [Recovered/Resolved]
  - Ligament laxity [Not Recovered/Not Resolved]
  - Spinal osteoarthritis [Recovered/Resolved]
  - Cystitis noninfective [Recovered/Resolved]
  - Cataract [Recovered/Resolved]
  - Influenza [Recovered/Resolved]

NARRATIVE: CASE EVENT DATE: 20230522
